FAERS Safety Report 18464340 (Version 4)
Quarter: 2022Q1

REPORT INFORMATION
  Report Type: Report from Study
  Country: US (occurrence: US)
  Receive Date: 20201104
  Receipt Date: 20220304
  Transmission Date: 20220423
  Serious: Yes (Hospitalization)
  Sender: FDA-Public Use
  Company Number: US-TEVA-2020-US-1845756

PATIENT
  Age: 41 Year
  Sex: Female

DRUGS (2)
  1. TREPROSTINIL [Suspect]
     Active Substance: TREPROSTINIL
     Indication: Rheumatoid arthritis
     Dosage: DOSE: 54.5 NG/KG/MIN; FREQUENCY: CONTINUOUS
     Route: 042
     Dates: start: 20190626
  2. TREPROSTINIL [Suspect]
     Active Substance: TREPROSTINIL
     Indication: Pulmonary arterial hypertension
     Dosage: 54.5 NG/KG/MIN/FREQUENCY: DOSING RANGE: MIN 1 NG KG MIN TO MAX 150 NG KG MIN
     Route: 042
     Dates: start: 201712

REACTIONS (7)
  - COVID-19 [Unknown]
  - Product preparation issue [Unknown]
  - Circumstance or information capable of leading to medication error [Unknown]
  - Feeling abnormal [Unknown]
  - Infusion site erythema [Unknown]
  - Infusion site hypersensitivity [Unknown]
  - Dyspnoea [Unknown]

NARRATIVE: CASE EVENT DATE: 20201027
